FAERS Safety Report 16001844 (Version 2)
Quarter: 2019Q2

REPORT INFORMATION
  Report Type: Spontaneous
  Country: DE (occurrence: DE)
  Receive Date: 20190225
  Receipt Date: 20190404
  Transmission Date: 20190711
  Serious: Yes (Life-Threatening, Hospitalization, Other)
  Sender: FDA-Public Use
  Company Number: DE-PFIZER INC-2018462537

PATIENT
  Age: 74 Year
  Sex: Female
  Weight: 60 kg

DRUGS (2)
  1. XELJANZ [Suspect]
     Active Substance: TOFACITINIB CITRATE
     Indication: RHEUMATOID ARTHRITIS
     Dosage: 5 MG, 2X/DAY
     Route: 048
     Dates: start: 201810, end: 201901
  2. PREDNISOLON [Concomitant]
     Active Substance: PREDNISOLONE
     Indication: RHEUMATOID ARTHRITIS
     Dosage: 7 UNK, UNK
     Route: 048

REACTIONS (2)
  - Headache [Recovered/Resolved]
  - Pericarditis [Not Recovered/Not Resolved]

NARRATIVE: CASE EVENT DATE: 201810
